FAERS Safety Report 13653971 (Version 4)
Quarter: 2018Q2

REPORT INFORMATION
  Report Type: Spontaneous
  Country: US (occurrence: US)
  Receive Date: 20170614
  Receipt Date: 20180529
  Transmission Date: 20180711
  Serious: Yes (Death, Life-Threatening, Hospitalization, Other)
  Sender: FDA-Public Use
  Company Number: US-PFIZER INC-2017255351

PATIENT
  Age: 71 Year
  Sex: Male
  Weight: 122 kg

DRUGS (8)
  1. COUMADIN [Concomitant]
     Active Substance: WARFARIN SODIUM
     Indication: ATRIAL FIBRILLATION
     Dosage: UNK, 2X/DAY
  2. MORPHINE SULFATE. [Suspect]
     Active Substance: MORPHINE SULFATE
     Dosage: 700 MG, DAILY
  3. AMBIEN [Suspect]
     Active Substance: ZOLPIDEM TARTRATE
     Indication: SLEEP DISORDER
     Dosage: 10 MG, MONTHLY
     Dates: start: 201212
  4. ROPINIROLE. [Suspect]
     Active Substance: ROPINIROLE
     Indication: RESTLESS LEGS SYNDROME
     Dosage: 2 MG, 1X/DAY
     Dates: start: 201305
  5. LYRICA [Suspect]
     Active Substance: PREGABALIN
     Indication: NEUROPATHY PERIPHERAL
     Dosage: 200 MG, 2X/DAY
     Route: 048
     Dates: start: 20170302
  6. MORPHINE SULFATE. [Suspect]
     Active Substance: MORPHINE SULFATE
     Dosage: 100 MG, UNK
     Dates: start: 201401
  7. CARVEDILOL. [Suspect]
     Active Substance: CARVEDILOL
     Indication: CARDIAC DISORDER
     Dosage: 2 DF, DAILY
  8. HYDROCODONE [Concomitant]
     Active Substance: HYDROCODONE
     Indication: PAIN
     Dosage: 10.325 MG, 2X/DAY

REACTIONS (12)
  - Hypotension [Recovered/Resolved]
  - Hallucination [Unknown]
  - Sepsis [Unknown]
  - Cardiac failure congestive [Unknown]
  - Cardiac arrest [Recovered/Resolved]
  - Fluid retention [Unknown]
  - Dysarthria [Unknown]
  - Sleep disorder [Unknown]
  - Abnormal dreams [Unknown]
  - Arteriosclerosis [Fatal]
  - Renal failure [Recovered/Resolved]
  - Weight increased [Unknown]

NARRATIVE: CASE EVENT DATE: 20170302
